FAERS Safety Report 8144670 (Version 9)
Quarter: 2013Q2

REPORT INFORMATION
  Report Type: Spontaneous
  Country: US (occurrence: US)
  Receive Date: 20110920
  Receipt Date: 20130408
  Transmission Date: 20140414
  Serious: Yes (Hospitalization, Other)
  Sender: FDA-Public Use
  Company Number: US-MERCK SHARP + DOHME D.O.O.-1109USA01763

PATIENT
  Sex: Female
  Weight: 113.4 kg

DRUGS (7)
  1. FOSAMAX [Suspect]
     Indication: OSTEOPENIA
     Dosage: 10 MG, UNK
     Route: 048
     Dates: start: 20020320, end: 20020614
  2. FOSAMAX [Suspect]
     Dosage: 70 MG, QW
     Route: 048
     Dates: start: 20020626, end: 20080127
  3. FOSAMAX [Suspect]
     Dosage: 10 MG, QW
     Route: 048
     Dates: start: 20050525
  4. FOSAMAX [Suspect]
     Indication: OSTEOPENIA
     Dosage: 70 MG, UNK
     Route: 048
     Dates: start: 20080224, end: 200909
  5. CYANOCOBALAMIN [Concomitant]
  6. NEURONTIN [Concomitant]
  7. AMIODARONE [Concomitant]
     Dosage: UNK
     Route: 048
     Dates: start: 200011

REACTIONS (93)
  - Bursitis [Unknown]
  - Insomnia [Unknown]
  - Low turnover osteopathy [Unknown]
  - Oral infection [Unknown]
  - Hypercholesterolaemia [Unknown]
  - Rotator cuff syndrome [Unknown]
  - Hypertension [Unknown]
  - Chest pain [Unknown]
  - Tricuspid valve incompetence [Unknown]
  - Cardiac murmur [Not Recovered/Not Resolved]
  - Mitral valve incompetence [Unknown]
  - Lung disorder [Unknown]
  - Osteoarthritis [Unknown]
  - Inappropriate schedule of drug administration [Unknown]
  - Varicose vein [Unknown]
  - Carotid artery stenosis [Unknown]
  - Uterine leiomyoma [Unknown]
  - Pulmonary fibrosis [Unknown]
  - Atelectasis [Unknown]
  - Pulmonary mass [Unknown]
  - Meniscus injury [Not Recovered/Not Resolved]
  - Patellofemoral pain syndrome [Not Recovered/Not Resolved]
  - Plantar fasciitis [Unknown]
  - Rotator cuff syndrome [Unknown]
  - Bursitis [Unknown]
  - Joint effusion [Unknown]
  - Synovial cyst [Unknown]
  - Tendon disorder [Unknown]
  - Anxiety [Unknown]
  - Somnolence [Unknown]
  - Aortic valve disease [Unknown]
  - Tooth abscess [Unknown]
  - Tooth disorder [Unknown]
  - Periodontal disease [Unknown]
  - Loose tooth [Unknown]
  - Eustachian tube dysfunction [Unknown]
  - Atrial tachycardia [Unknown]
  - Blood pressure increased [Unknown]
  - Hyperlipidaemia [Unknown]
  - Iron deficiency anaemia [Unknown]
  - Aortic stenosis [Unknown]
  - Urinary tract infection [Not Recovered/Not Resolved]
  - Osteoarthritis [Unknown]
  - Hypoparathyroidism [Unknown]
  - Amnesia [Unknown]
  - Vitamin D deficiency [Unknown]
  - Hypothyroidism [Unknown]
  - Lactose intolerance [Unknown]
  - Hair growth abnormal [Unknown]
  - Arteriosclerosis [Unknown]
  - Haematuria [Unknown]
  - Venous insufficiency [Unknown]
  - Fall [Unknown]
  - Osteoporosis [Unknown]
  - Gait apraxia [Unknown]
  - Nephrolithiasis [Unknown]
  - Eye disorder [Unknown]
  - Hepatomegaly [Unknown]
  - Increased tendency to bruise [Unknown]
  - Cataract operation [Unknown]
  - Tonsillectomy [Unknown]
  - Drug intolerance [Unknown]
  - Dyspnoea [Unknown]
  - Angiopathy [Unknown]
  - Dental implantation [Unknown]
  - Ischaemia [Unknown]
  - Depression [Unknown]
  - Appendicectomy [Unknown]
  - Oedema [Unknown]
  - Cardiac stress test abnormal [Unknown]
  - Blood glucose decreased [Unknown]
  - Back pain [Unknown]
  - Diarrhoea [Unknown]
  - Myalgia [Unknown]
  - Hypocalcaemia [Unknown]
  - Arthralgia [Unknown]
  - Flatulence [Unknown]
  - Constipation [Unknown]
  - Muscle spasms [Unknown]
  - Dizziness [Unknown]
  - Oedema peripheral [Unknown]
  - Gastrooesophageal reflux disease [Unknown]
  - Femur fracture [Unknown]
  - Bone graft [Unknown]
  - Lower limb fracture [Unknown]
  - Pneumonia [Unknown]
  - Rotator cuff repair [Unknown]
  - Arthroscopic surgery [Unknown]
  - Gastroenteritis viral [Recovered/Resolved]
  - Aortic valve repair [Unknown]
  - Dehydration [Recovered/Resolved]
  - Open reduction of fracture [Unknown]
  - Osteonecrosis of jaw [Unknown]
